FAERS Safety Report 5727377-9 (Version None)
Quarter: 2008Q2

REPORT INFORMATION
  Report Type: 
  Country: None (occurrence: None)
  Receive Date: 20080505
  Receipt Date: 20080505
  Transmission Date: 20081010
  Serious: Yes (Life-Threatening, Hospitalization, Disabling, Other)
  Sender: FDA-Public Use
  Company Number: None

PATIENT
  Age: 61 Year
  Sex: Male
  Weight: 90.7194 kg

DRUGS (1)
  1. HEPARIN [Suspect]

REACTIONS (3)
  - CARDIAC ARREST [None]
  - HEPARIN-INDUCED THROMBOCYTOPENIA [None]
  - THROMBOSIS [None]
